FAERS Safety Report 16554550 (Version 1)
Quarter: 2019Q3

REPORT INFORMATION
  Report Type: Spontaneous
  Country: DE (occurrence: DE)
  Receive Date: 20190710
  Receipt Date: 20190710
  Transmission Date: 20191004
  Serious: Yes (Other)
  Sender: FDA-Public Use
  Company Number: DE-BAYER-2019-125274

PATIENT
  Age: 73 Year
  Sex: Male
  Weight: 78 kg

DRUGS (1)
  1. CIPROFLOXACIN MONOHYDROCHLORIDE [Suspect]
     Active Substance: CIPROFLOXACIN
     Dosage: 1/DAY, 1 WEEK
     Route: 048

REACTIONS (2)
  - Pain in extremity [Recovering/Resolving]
  - Muscle rupture [Recovering/Resolving]

NARRATIVE: CASE EVENT DATE: 20190410
